FAERS Safety Report 10922485 (Version 1)
Quarter: 2015Q1

REPORT INFORMATION
  Report Type: Spontaneous
  Country: US (occurrence: US)
  Receive Date: 20150317
  Receipt Date: 20150317
  Transmission Date: 20150721
  Serious: Yes (Other)
  Sender: FDA-Public Use
  Company Number: CHPA2015US003614

PATIENT
  Age: 87 Year
  Sex: Male

DRUGS (1)
  1. VOLTAREN [Suspect]
     Active Substance: DICLOFENAC SODIUM
     Indication: ARTHRITIS
     Dosage: UNK, 1-2 TIMES A DAY
     Route: 061
     Dates: start: 2013

REACTIONS (4)
  - Pollakiuria [Unknown]
  - Chronic kidney disease [Not Recovered/Not Resolved]
  - Wrong technique in drug usage process [Unknown]
  - Drug administered at inappropriate site [Unknown]

NARRATIVE: CASE EVENT DATE: 2013
